FAERS Safety Report 19387246 (Version 1)
Quarter: 2021Q2

REPORT INFORMATION
  Report Type: Spontaneous
  Country: US (occurrence: US)
  Receive Date: 20210608
  Receipt Date: 20210608
  Transmission Date: 20210717
  Serious: No
  Sender: FDA-Public Use
  Company Number: US-SA-2021SA188423

PATIENT
  Sex: Male

DRUGS (3)
  1. DUPIXENT [Suspect]
     Active Substance: DUPILUMAB
     Route: 050
  2. CIMZIA [Concomitant]
     Active Substance: CERTOLIZUMAB PEGOL
  3. WARFARIN [Concomitant]
     Active Substance: WARFARIN

REACTIONS (2)
  - Back pain [Unknown]
  - Pain in extremity [Unknown]
